FAERS Safety Report 6015548-6 (Version None)
Quarter: 2008Q4

REPORT INFORMATION
  Report Type: 
  Country: None (occurrence: None)
  Receive Date: 20081218
  Receipt Date: 20081209
  Transmission Date: 20090506
  Serious: Yes (Hospitalization)
  Sender: FDA-Public Use
  Company Number: 2008-04671

PATIENT
  Age: 41 Year
  Sex: Male
  Weight: 59 kg

DRUGS (2)
  1. VELCADE [Suspect]
     Indication: MULTIPLE MYELOMA
     Dosage: 1.3 MG/M2, INTRAVENOUS
     Route: 042
     Dates: start: 20080107, end: 20080524
  2. DEXAMETHASONE [Concomitant]

REACTIONS (3)
  - ENTEROCOLITIS INFECTIOUS [None]
  - FLATULENCE [None]
  - VOMITING [None]
